FAERS Safety Report 25235108 (Version 1)
Quarter: 2025Q2

REPORT INFORMATION
  Report Type: Spontaneous
  Country: PR (occurrence: PR)
  Receive Date: 20250424
  Receipt Date: 20250424
  Transmission Date: 20250716
  Serious: No
  Sender: MERCK SHARP & DOHME LLC
  Company Number: PR-009507513-2278468

PATIENT
  Age: 48 Year
  Sex: Female

DRUGS (1)
  1. KEYTRUDA [Suspect]
     Active Substance: PEMBROLIZUMAB
     Indication: Cervix carcinoma stage IV
     Dosage: 100 MG (OR 2 MG/KG), EVERY 3 WEEKS FOR 24 MONTHS, TOTALING 32 CYCLES
     Route: 065

REACTIONS (2)
  - Hidradenitis [Recovered/Resolved]
  - Incorrect dose administered [Unknown]
